FAERS Safety Report 7742687-1 (Version None)
Quarter: 2011Q3

REPORT INFORMATION
  Report Type: 
  Country: None (occurrence: None)
  Receive Date: 20110912
  Receipt Date: 20110901
  Transmission Date: 20111222
  Serious: Yes (Hospitalization)
  Sender: FDA-Public Use
  Company Number: JP-JNJFOC-20110901743

PATIENT
  Age: 50 Year
  Sex: Male
  Weight: 100 kg

DRUGS (5)
  1. REMICADE [Suspect]
     Indication: CROHN'S DISEASE
     Route: 042
     Dates: start: 20090724
  2. PHELLOBERIN [Concomitant]
     Indication: CROHN'S DISEASE
     Dates: start: 20090609
  3. REMICADE [Suspect]
     Route: 042
     Dates: start: 20090609
  4. REMICADE [Suspect]
     Route: 042
     Dates: start: 20090623
  5. PENTASA [Concomitant]
     Indication: CROHN'S DISEASE
     Dates: start: 20090609

REACTIONS (1)
  - INTESTINAL PERFORATION [None]
